FAERS Safety Report 9289937 (Version 1)
Quarter: 2013Q2

REPORT INFORMATION
  Report Type: Spontaneous
  Country: US (occurrence: US)
  Receive Date: 20130515
  Receipt Date: 20130515
  Transmission Date: 20140414
  Serious: Yes (Hospitalization)
  Sender: FDA-Public Use
  Company Number: US-BAYER-2013-059085

PATIENT
  Age: 22 Year
  Sex: Female
  Weight: 98.87 kg

DRUGS (15)
  1. YASMIN [Suspect]
  2. PHENERGAN [Concomitant]
  3. PERCOCET [Concomitant]
  4. IBUPROFEN [Concomitant]
  5. CEFTRIAXONE [Concomitant]
  6. VANCOMYCIN [Concomitant]
  7. AUGMENTIN [Concomitant]
  8. STATIN [Concomitant]
  9. DIAMOX [Concomitant]
  10. FLAGYL [Concomitant]
  11. ROXICODONE [Concomitant]
  12. ZOCOR [Concomitant]
  13. ACETAMINOPHEN [Concomitant]
  14. CEPHALEXIN [Concomitant]
     Dosage: 500 MG, UNK
  15. PLAN B [Concomitant]

REACTIONS (2)
  - Intracranial venous sinus thrombosis [None]
  - Jugular vein thrombosis [None]
